FAERS Safety Report 9458886 (Version 1)
Quarter: 2013Q3

REPORT INFORMATION
  Report Type: Spontaneous
  Country: CA (occurrence: CA)
  Receive Date: 20130814
  Receipt Date: 20130814
  Transmission Date: 20140515
  Serious: Yes (Hospitalization, Other)
  Sender: FDA-Public Use
  Company Number: CA-AMGEN-CANSP2013055980

PATIENT
  Age: 47 Year
  Sex: Male
  Weight: 78.02 kg

DRUGS (19)
  1. ENBREL [Suspect]
     Indication: PSORIASIS
     Dosage: UNK
     Route: 065
     Dates: start: 201001, end: 201011
  2. USTEKINUMAB [Suspect]
     Indication: PSORIASIS
     Dosage: EVERY 12 WEEKS
     Route: 058
     Dates: start: 201108
  3. USTEKINUMAB [Suspect]
     Dosage: EVERY 12 WEEKS
     Route: 058
     Dates: start: 20120827
  4. USTEKINUMAB [Suspect]
     Dosage: EVERY 12 WEEKS
     Route: 058
     Dates: start: 20120707
  5. PERINDOPRIL [Concomitant]
     Dosage: UNK
  6. CLOPIDOGREL [Concomitant]
     Dosage: UNK
  7. PANTOPRAZOLE [Concomitant]
     Dosage: UNK
  8. METFORMIN [Concomitant]
     Indication: TYPE 2 DIABETES MELLITUS
     Dosage: UNK
  9. IBUPROFEN [Concomitant]
     Dosage: UNK
  10. TEMAZEPAM [Concomitant]
     Dosage: UNK
  11. ACETYLSALICYLIC ACID [Concomitant]
     Dosage: UNK
  12. GLYCERYL TRINITRATE [Concomitant]
     Dosage: UNK
  13. OXYCOCET [Concomitant]
     Indication: MIGRAINE
     Dosage: 5/325 MG EVERY 4-6 HOURS AS NEEDED
  14. PANADEINE CO [Concomitant]
     Indication: MIGRAINE
     Dosage: UNK
  15. INSULIN [Concomitant]
     Indication: TYPE 2 DIABETES MELLITUS
     Dosage: UNK
  16. ESCITALOPRAM [Concomitant]
     Dosage: 20 MG, QD
     Route: 048
  17. NORTRIPTYLINE [Concomitant]
     Dosage: 25 MG, UNK
     Route: 048
  18. ATORVASTATIN [Concomitant]
     Dosage: UNK
  19. METOPROLOL [Concomitant]
     Dosage: UNK

REACTIONS (8)
  - Acute myocardial infarction [Recovered/Resolved]
  - Cardiogenic shock [Unknown]
  - Left ventricular dysfunction [Unknown]
  - Weight decreased [Unknown]
  - Pneumonia [Recovered/Resolved]
  - Respiratory disorder [Not Recovered/Not Resolved]
  - Drug dependence [Unknown]
  - Drug ineffective [Unknown]
